FAERS Safety Report 9631114 (Version 1)
Quarter: 2013Q4

REPORT INFORMATION
  Report Type: Spontaneous
  Country: AT (occurrence: AT)
  Receive Date: 20131018
  Receipt Date: 20131018
  Transmission Date: 20140711
  Serious: Yes (Death)
  Sender: FDA-Public Use
  Company Number: AT-ASTRAZENECA-2013SE76075

PATIENT
  Age: 32 Year
  Sex: Female
  Weight: 67.3 kg

DRUGS (18)
  1. SEROQUEL XR [Suspect]
     Indication: ADJUSTMENT DISORDER
     Route: 048
     Dates: start: 20130506, end: 20130506
  2. SEROQUEL XR [Suspect]
     Indication: DEPRESSION
     Route: 048
     Dates: start: 20130506, end: 20130506
  3. SEROQUEL XR [Suspect]
     Indication: ADJUSTMENT DISORDER
     Route: 048
     Dates: start: 20130507, end: 20130602
  4. SEROQUEL XR [Suspect]
     Indication: DEPRESSION
     Route: 048
     Dates: start: 20130507, end: 20130602
  5. SEROQUEL XR [Suspect]
     Indication: ADJUSTMENT DISORDER
     Route: 048
     Dates: start: 20130522, end: 20130602
  6. SEROQUEL XR [Suspect]
     Indication: DEPRESSION
     Route: 048
     Dates: start: 20130522, end: 20130602
  7. ZOLDEM [Suspect]
     Dates: start: 20130329, end: 20130526
  8. WELLBUTRIN [Suspect]
     Dosage: 150 DAILY
     Dates: start: 20130507, end: 20130527
  9. CYMBALTA [Suspect]
     Dates: start: 20130403, end: 20130406
  10. CYMBALTA [Suspect]
     Dates: start: 20130407, end: 20130415
  11. CYMBALTA [Suspect]
     Dates: start: 20130416
  12. DOMINAL FORTE [Suspect]
     Dates: start: 20130410, end: 20130421
  13. DOMINAL FORTE [Suspect]
     Dates: start: 20130422
  14. PANTOLOC [Concomitant]
     Dates: start: 20130428, end: 20130602
  15. THYREX [Concomitant]
     Dosage: 25-50 UG DAILY
     Dates: start: 20130506, end: 20130602
  16. THYREX [Concomitant]
     Dosage: 50?G ALTERNATING ? TABL OR 1 TABL. IN THE MORNING
     Dates: start: 20130602
  17. OSPEXIN [Concomitant]
     Dosage: 2000 DAILY
     Dates: start: 20130528, end: 20130602
  18. OSPEXIN [Concomitant]
     Dates: start: 20130602

REACTIONS (5)
  - Completed suicide [Fatal]
  - Accident [Fatal]
  - Death [Fatal]
  - Myoclonus [Unknown]
  - Nightmare [Recovered/Resolved]
